FAERS Safety Report 14028090 (Version 1)
Quarter: 2017Q3

REPORT INFORMATION
  Report Type: Spontaneous
  Country: US (occurrence: US)
  Receive Date: 20170929
  Receipt Date: 20170929
  Transmission Date: 20171128
  Serious: No
  Sender: FDA-Public Use
  Company Number: None

PATIENT
  Age: 48 Year
  Sex: Female
  Weight: 95.4 kg

DRUGS (17)
  1. LASIX [Concomitant]
     Active Substance: FUROSEMIDE
  2. SPIRONOLACTONE. [Concomitant]
     Active Substance: SPIRONOLACTONE
  3. POTASSIUM [Concomitant]
     Active Substance: POTASSIUM
  4. IMITREX [Concomitant]
     Active Substance: SUMATRIPTAN SUCCINATE
  5. GABAPENTIN. [Concomitant]
     Active Substance: GABAPENTIN
  6. PHENOBARBITAL. [Concomitant]
     Active Substance: PHENOBARBITAL
  7. ACYCLOVIR. [Suspect]
     Active Substance: ACYCLOVIR
     Indication: HERPES ZOSTER
     Dosage: ?          QUANTITY:80 TABLET(S);?
     Route: 048
     Dates: start: 20170914, end: 20170928
  8. ACYCLOVIR. [Suspect]
     Active Substance: ACYCLOVIR
     Indication: OPHTHALMIC HERPES ZOSTER
     Dosage: ?          QUANTITY:80 TABLET(S);?
     Route: 048
     Dates: start: 20170914, end: 20170928
  9. CLONAZAPINE, USP ODT (CLOZAPINE, USP) OCT) (ORAL DISINTEGRATING TABLET) [Concomitant]
     Active Substance: CLOZAPINE
  10. ACYCLOVIR. [Suspect]
     Active Substance: ACYCLOVIR
     Indication: ORAL HERPES
     Dosage: ?          QUANTITY:80 TABLET(S);?
     Route: 048
     Dates: start: 20170914, end: 20170928
  11. HYDROXAZINE [Concomitant]
  12. PEPCID [Concomitant]
     Active Substance: FAMOTIDINE
  13. ATORVASTATIN [Concomitant]
     Active Substance: ATORVASTATIN
  14. VITAMIN D [Concomitant]
     Active Substance: CHOLECALCIFEROL
  15. DAILY VITAMINS ^ONE A DAY^ [Concomitant]
     Active Substance: VITAMINS
  16. MAGNESIUM [Concomitant]
     Active Substance: MAGNESIUM
  17. SYNTHROID [Concomitant]
     Active Substance: LEVOTHYROXINE SODIUM

REACTIONS (1)
  - Cystitis [None]

NARRATIVE: CASE EVENT DATE: 20170916
